FAERS Safety Report 17753088 (Version 3)
Quarter: 2020Q2

REPORT INFORMATION
  Report Type: Spontaneous
  Country: US (occurrence: US)
  Receive Date: 20200506
  Receipt Date: 20200511
  Transmission Date: 20200714
  Serious: Yes (Other)
  Sender: FDA-Public Use
  Company Number: US-LUNDBECK-DKLU3016005

PATIENT
  Age: 17 Year
  Sex: Female

DRUGS (8)
  1. LAMOTRIGINE. [Suspect]
     Active Substance: LAMOTRIGINE
     Indication: SEIZURE
     Route: 065
  2. LAMOTRIGINE. [Suspect]
     Active Substance: LAMOTRIGINE
     Indication: LAFORA^S MYOCLONIC EPILEPSY
  3. FELBAMATE. [Suspect]
     Active Substance: FELBAMATE
     Indication: SEIZURE
     Route: 065
  4. CLOBAZAM. [Suspect]
     Active Substance: CLOBAZAM
     Indication: SEIZURE
     Route: 065
  5. CLONAZEPAM. [Suspect]
     Active Substance: CLONAZEPAM
     Indication: SEIZURE
     Route: 065
  6. VALPROIC ACID. [Suspect]
     Active Substance: VALPROIC ACID
     Indication: SEIZURE
     Route: 065
  7. ZONISAMIDE. [Suspect]
     Active Substance: ZONISAMIDE
     Indication: SEIZURE
     Route: 065
  8. LEVETIRACETAM. [Suspect]
     Active Substance: LEVETIRACETAM
     Indication: SEIZURE
     Route: 065

REACTIONS (6)
  - Seizure [Recovering/Resolving]
  - Therapeutic product effect decreased [Unknown]
  - Lafora^s myoclonic epilepsy [Recovering/Resolving]
  - Therapeutic response decreased [Unknown]
  - Condition aggravated [Recovering/Resolving]
  - Drug ineffective [Unknown]
